FAERS Safety Report 24204931 (Version 2)
Quarter: 2025Q1

REPORT INFORMATION
  Report Type: Spontaneous
  Country: CA (occurrence: CA)
  Receive Date: 20240813
  Receipt Date: 20250209
  Transmission Date: 20250409
  Serious: Yes (Other)
  Sender: AUROBINDO
  Company Number: CA-AUROBINDO-AUR-APL-2024-039671

PATIENT
  Age: 40 Year
  Sex: Male

DRUGS (13)
  1. CITALOPRAM [Interacting]
     Active Substance: CITALOPRAM
     Indication: Mental disorder
     Route: 065
  2. OLANZAPINE [Interacting]
     Active Substance: OLANZAPINE
     Indication: Mental disorder
     Route: 065
  3. NEVIRAPINE [Suspect]
     Active Substance: NEVIRAPINE
     Indication: Product used for unknown indication
     Route: 065
     Dates: end: 20080128
  4. VENLAFAXINE [Suspect]
     Active Substance: VENLAFAXINE HYDROCHLORIDE
     Indication: Product used for unknown indication
     Route: 065
  5. STAVUDINE [Suspect]
     Active Substance: STAVUDINE
     Indication: Product used for unknown indication
     Route: 065
     Dates: end: 20080128
  6. ATAZANAVIR [Suspect]
     Active Substance: ATAZANAVIR
     Indication: Product used for unknown indication
     Route: 065
     Dates: end: 20080128
  7. RALTEGRAVIR [Suspect]
     Active Substance: RALTEGRAVIR
     Indication: Product used for unknown indication
     Dosage: 400 MILLIGRAM, TWO TIMES A DAY
     Route: 065
  8. AMITRIPTYLINE [Interacting]
     Active Substance: AMITRIPTYLINE
     Indication: Mental disorder
     Route: 065
  9. ISENTRESS [Interacting]
     Active Substance: RALTEGRAVIR POTASSIUM
     Indication: HIV infection
     Dosage: 400 MILLIGRAM, TWO TIMES A DAY
     Route: 065
  10. EMTRICITABINE [Concomitant]
     Active Substance: EMTRICITABINE
     Indication: HIV infection
     Route: 065
  11. LOPINAVIR\RITONAVIR [Concomitant]
     Active Substance: LOPINAVIR\RITONAVIR
     Indication: HIV infection
     Route: 065
  12. TENOFOVIR [Concomitant]
     Active Substance: TENOFOVIR
     Indication: HIV infection
     Route: 065
  13. DARUNAVIR [Concomitant]
     Active Substance: DARUNAVIR
     Indication: Product used for unknown indication
     Route: 065

REACTIONS (4)
  - Hallucination, auditory [Recovered/Resolved]
  - Depression [Recovered/Resolved]
  - Drug interaction [Recovered/Resolved]
  - Gastrointestinal disorder [Unknown]
